FAERS Safety Report 7124040-7 (Version None)
Quarter: 2010Q4

REPORT INFORMATION
  Report Type: 
  Country: None (occurrence: None)
  Receive Date: 20101126
  Receipt Date: 20101124
  Transmission Date: 20110411
  Serious: Yes (Other)
  Sender: FDA-Public Use
  Company Number: JP-PFIZER INC-2010156335

PATIENT
  Age: 73 Year
  Sex: Female

DRUGS (3)
  1. VORICONAZOLE [Suspect]
     Indication: BRONCHOPULMONARY ASPERGILLOSIS
     Dosage: UNK
     Route: 048
     Dates: end: 20090701
  2. VORICONAZOLE [Suspect]
     Dosage: UNK
     Route: 041
     Dates: start: 20100401
  3. ISONIAZID [Concomitant]

REACTIONS (1)
  - PNEUMONIA [None]
